FAERS Safety Report 8701979 (Version 2)
Quarter: 2012Q4

REPORT INFORMATION
  Report Type: 
  Country: US (occurrence: US)
  Receive Date: 20120803
  Receipt Date: 20120921
  Transmission Date: 20130627
  Serious: Yes (Hospitalization, Disabling, Other)
  Sender: FDA-Public Use
  Company Number: US-JNJFOC-20120714618

PATIENT
  Age: 65 Year
  Sex: Male
  Weight: 113.4 kg

DRUGS (4)
  1. XARELTO [Suspect]
     Indication: KNEE ARTHROPLASTY
     Route: 048
     Dates: start: 20120524, end: 20120601
  2. XARELTO [Suspect]
     Indication: PROPHYLAXIS
     Route: 048
     Dates: start: 20120524, end: 20120601
  3. COUMADIN [Suspect]
     Indication: KNEE ARTHROPLASTY
     Route: 048
     Dates: start: 20120601
  4. COUMADIN [Suspect]
     Indication: THROMBOSIS PROPHYLAXIS
     Route: 048
     Dates: start: 20120601

REACTIONS (4)
  - Pulmonary embolism [Not Recovered/Not Resolved]
  - Post thrombotic syndrome [Recovering/Resolving]
  - Deep vein thrombosis [Recovered/Resolved with Sequelae]
  - Retroperitoneal haemorrhage [Unknown]
